FAERS Safety Report 25043672 (Version 1)
Quarter: 2025Q1

REPORT INFORMATION
  Report Type: Spontaneous
  Country: US (occurrence: US)
  Receive Date: 20250306
  Receipt Date: 20250306
  Transmission Date: 20250409
  Serious: Yes (Other)
  Sender: REGENERON
  Company Number: US-REGENERON PHARMACEUTICALS, INC.-2025-040446

PATIENT
  Sex: Male

DRUGS (2)
  1. EYLEA [Suspect]
     Active Substance: AFLIBERCEPT
     Indication: Neovascular age-related macular degeneration
     Dosage: 2 MG, EVERY 6 WEEKS IN BOTH EYES, FORMULATION: 2 MG (UNKNOWN)
     Dates: start: 2020
  2. EYLEA [Suspect]
     Active Substance: AFLIBERCEPT
     Indication: Dry age-related macular degeneration

REACTIONS (6)
  - Eye infection [Unknown]
  - Immune-mediated adverse reaction [Unknown]
  - Visual impairment [Unknown]
  - Adverse event [Unknown]
  - Vision blurred [Not Recovered/Not Resolved]
  - Off label use [Not Recovered/Not Resolved]

NARRATIVE: CASE EVENT DATE: 20200101
